FAERS Safety Report 18697960 (Version 2)
Quarter: 2021Q1

REPORT INFORMATION
  Report Type: Spontaneous
  Country: CN (occurrence: CN)
  Receive Date: 20210105
  Receipt Date: 20210204
  Transmission Date: 20210419
  Serious: Yes (Other)
  Sender: FDA-Public Use
  Company Number: CN-JNJFOC-20201253282

PATIENT
  Age: 12 Year
  Weight: 50 kg

DRUGS (2)
  1. VERMOX [Suspect]
     Active Substance: MEBENDAZOLE
     Dosage: MORNING
     Route: 048
     Dates: start: 20201228
  2. VERMOX [Suspect]
     Active Substance: MEBENDAZOLE
     Indication: PALLOR
     Dosage: EVENING
     Route: 048
     Dates: start: 20201227

REACTIONS (1)
  - Liver injury [Unknown]

NARRATIVE: CASE EVENT DATE: 202012
